FAERS Safety Report 23630131 (Version 2)
Quarter: 2024Q1

REPORT INFORMATION
  Report Type: Spontaneous
  Country: US (occurrence: US)
  Receive Date: 20240314
  Receipt Date: 20240319
  Transmission Date: 20240410
  Serious: No
  Sender: FDA-Public Use
  Company Number: US-ABBVIE-5676876

PATIENT
  Sex: Female

DRUGS (2)
  1. CREON [Suspect]
     Active Substance: PANCRELIPASE AMYLASE\PANCRELIPASE LIPASE\PANCRELIPASE PROTEASE
     Indication: Pancreatic failure
     Dosage: FORM STRENGTH: 36000 UNIT
     Route: 048
  2. CREON [Suspect]
     Active Substance: PANCRELIPASE AMYLASE\PANCRELIPASE LIPASE\PANCRELIPASE PROTEASE
     Indication: Pancreatic failure
     Dosage: FORM STRENGTH: 10000  UNIT
     Route: 048

REACTIONS (15)
  - Weight decreased [Unknown]
  - Asthenia [Unknown]
  - Headache [Unknown]
  - Muscle tightness [Unknown]
  - Cough [Unknown]
  - Muscle spasms [Unknown]
  - Eye pain [Unknown]
  - Nausea [Unknown]
  - Joint swelling [Unknown]
  - Rhinorrhoea [Unknown]
  - Blood cholesterol increased [Unknown]
  - Vision blurred [Unknown]
  - Hyperglycaemia [Unknown]
  - Vomiting [Unknown]
  - Abdominal distension [Unknown]
